FAERS Safety Report 9166130 (Version 2)
Quarter: 2013Q1

REPORT INFORMATION
  Report Type: Spontaneous
  Country: US (occurrence: US)
  Receive Date: 20130315
  Receipt Date: 20130325
  Transmission Date: 20140127
  Serious: Yes (Hospitalization, Other)
  Sender: FDA-Public Use
  Company Number: US-PFIZER INC-2013087458

PATIENT
  Age: 53 Year
  Sex: Male

DRUGS (4)
  1. HALOPERIDOL [Suspect]
     Indication: BIPOLAR DISORDER
     Dosage: UNK
  2. LITHIUM CARBONATE [Suspect]
     Indication: BIPOLAR DISORDER
     Dosage: UNK
  3. OLANZAPINE [Suspect]
     Indication: BIPOLAR DISORDER
  4. VALPROATE SEMISODIUM [Suspect]
     Indication: BIPOLAR DISORDER

REACTIONS (1)
  - Dystonia [Recovering/Resolving]
